FAERS Safety Report 14780331 (Version 2)
Quarter: 2018Q2

REPORT INFORMATION
  Report Type: Spontaneous
  Country: IT (occurrence: IT)
  Receive Date: 20180419
  Receipt Date: 20180630
  Transmission Date: 20180711
  Serious: Yes (Other)
  Sender: FDA-Public Use
  Company Number: IT-TEVA-2018-IT-880845

PATIENT
  Age: 71 Year
  Sex: Male

DRUGS (1)
  1. KETOPROFEN. [Suspect]
     Active Substance: KETOPROFEN
     Indication: PAIN
     Dosage: 3 DOSAGE FORMS DAILY;
     Route: 048
     Dates: start: 20180124, end: 20180124

REACTIONS (3)
  - Dyspnoea [Recovered/Resolved]
  - Drug hypersensitivity [Recovered/Resolved]
  - Wheezing [Recovered/Resolved]

NARRATIVE: CASE EVENT DATE: 20180124
